FAERS Safety Report 4275168-0 (Version None)
Quarter: 2004Q1

REPORT INFORMATION
  Report Type: 
  Country: None (occurrence: None)
  Receive Date: 20040121
  Receipt Date: 20031209
  Transmission Date: 20041129
  Serious: Yes (Hospitalization)
  Sender: FDA-Public Use
  Company Number: PHBS2003IT13785

PATIENT
  Age: 81 Year
  Sex: Female

DRUGS (5)
  1. ZOMETA [Suspect]
     Indication: METASTASES TO BONE
     Dosage: 4 MG, QMO
     Route: 042
     Dates: start: 20021201, end: 20030301
  2. ENAPREN [Concomitant]
     Dosage: 20 MG/D
     Dates: start: 20000101, end: 20030409
  3. OXCARBAZEPINE [Concomitant]
     Dosage: 300 MG/D
     Dates: start: 20000101, end: 20030409
  4. LASIX [Concomitant]
     Dosage: 25 MG/D
     Dates: start: 20000101, end: 20030409
  5. VASCOMAN [Concomitant]
     Dates: start: 20000101, end: 20030409

REACTIONS (5)
  - BLOOD CREATININE INCREASED [None]
  - BLOOD UREA INCREASED [None]
  - CREATININE RENAL CLEARANCE DECREASED [None]
  - RENAL FAILURE ACUTE [None]
  - TUBULOINTERSTITIAL NEPHRITIS [None]
